FAERS Safety Report 4666861-6 (Version None)
Quarter: 2005Q2

REPORT INFORMATION
  Report Type: 
  Country: None (occurrence: None)
  Receive Date: 20050518
  Receipt Date: 20041221
  Transmission Date: 20051028
  Serious: Yes (Other)
  Sender: FDA-Public Use
  Company Number: 2004239254US

PATIENT
  Age: 21 Year
  Sex: Female
  Weight: 58.9676 kg

DRUGS (4)
  1. DEPO-PROVERA [Suspect]
     Indication: CONTRACEPTION
     Dosage: 150 MG (150 MG 1ST INJ TRIMES ) IM, 150 MG ( 150 MG MOST RECENT INJ ) IM)
     Route: 030
     Dates: start: 20011001, end: 20011001
  2. DEPO-PROVERA [Suspect]
     Indication: CONTRACEPTION
     Dosage: 150 MG (150 MG 1ST INJ TRIMES ) IM, 150 MG ( 150 MG MOST RECENT INJ ) IM)
     Route: 030
     Dates: start: 20040903, end: 20040903
  3. PAROXETINE HCL [Suspect]
     Indication: ILL-DEFINED DISORDER
     Dosage: UNKOWN
     Route: 065
     Dates: end: 20020101
  4. VENLAFAXINE HCL [Suspect]
     Indication: ILL-DEFINED DISORDER
     Route: 065
     Dates: start: 20020101

REACTIONS (6)
  - AMENORRHOEA [None]
  - CHILLS [None]
  - CONVULSION [None]
  - NIGHT SWEATS [None]
  - STRESS [None]
  - WEIGHT INCREASED [None]
